FAERS Safety Report 4896966-6 (Version None)
Quarter: 2006Q1

REPORT INFORMATION
  Report Type: 
  Country: None (occurrence: None)
  Receive Date: 20060127
  Receipt Date: 20060111
  Transmission Date: 20060701
  Serious: Yes (Hospitalization)
  Sender: FDA-Public Use
  Company Number: DSA_27469_2005

PATIENT
  Age: 73 Year
  Sex: Female

DRUGS (6)
  1. DILTIAZEM HCL [Suspect]
     Dosage: 300 MG Q DAY PO
     Route: 048
     Dates: start: 20050601
  2. ALDALIX [Suspect]
     Dosage: 70 MG Q DAY PO
     Route: 048
     Dates: start: 20050601, end: 20050622
  3. AMIODARONE [Concomitant]
  4. MEDIATOR [Concomitant]
  5. PREVISCAN [Concomitant]
  6. NOVOMIX [Concomitant]

REACTIONS (16)
  - ANOREXIA [None]
  - ASTHENIA [None]
  - BLOOD GLUCOSE INCREASED [None]
  - BLOOD PRESSURE SYSTOLIC INCREASED [None]
  - CREATININE RENAL CLEARANCE DECREASED [None]
  - DEHYDRATION [None]
  - DIABETES MELLITUS INADEQUATE CONTROL [None]
  - HYPERKALAEMIA [None]
  - HYPOCAPNIA [None]
  - HYPONATRAEMIA [None]
  - HYPOXIA [None]
  - NAUSEA [None]
  - NEUTROPHIL COUNT INCREASED [None]
  - PLATELET COUNT INCREASED [None]
  - THIRST [None]
  - VOLUME BLOOD DECREASED [None]
